FAERS Safety Report 11167637 (Version 1)
Quarter: 2015Q2

REPORT INFORMATION
  Report Type: Spontaneous
  Country: US (occurrence: None)
  Receive Date: 20150515
  Receipt Date: 20150515
  Transmission Date: 20150821
  Serious: Yes (Other)
  Sender: FDA-Public Use
  Company Number: 2014021437

PATIENT
  Age: 17 Year
  Sex: Female
  Weight: 46.2 kg

DRUGS (2)
  1. CIMZIA [Suspect]
     Active Substance: CERTOLIZUMAB PEGOL
     Indication: CROHN^S DISEASE
  2. PREDNISONE. [Concomitant]
     Active Substance: PREDNISONE

REACTIONS (6)
  - Headache [None]
  - Nausea [None]
  - Dizziness [None]
  - Chest discomfort [None]
  - Hypersensitivity [None]
  - Pyrexia [None]

NARRATIVE: CASE EVENT DATE: 20141208
